FAERS Safety Report 7235457-4 (Version None)
Quarter: 2011Q1

REPORT INFORMATION
  Report Type: 
  Country: None (occurrence: None)
  Receive Date: 20110120
  Receipt Date: 20110110
  Transmission Date: 20110831
  Serious: No
  Sender: FDA-Public Use
  Company Number: CA-JNJFOC-20110103648

PATIENT
  Age: 36 Year
  Sex: Female

DRUGS (3)
  1. TRAMADOL HYDROCHLORIDE/ACETAMINOPHEN [Suspect]
     Indication: PAIN
     Route: 048
  2. DURAGESIC-50 [Suspect]
     Indication: PAIN
     Route: 062
  3. HYDROMORPHONE HCL [Suspect]
     Indication: PAIN
     Route: 065

REACTIONS (3)
  - DRUG INEFFECTIVE [None]
  - DRUG DOSE OMISSION [None]
  - ADVERSE DRUG REACTION [None]
